FAERS Safety Report 12075493 (Version 4)
Quarter: 2017Q1

REPORT INFORMATION
  Report Type: Spontaneous
  Country: JP (occurrence: JP)
  Receive Date: 20160213
  Receipt Date: 20170317
  Transmission Date: 20170428
  Serious: Yes (Other)
  Sender: FDA-Public Use
  Company Number: JP-ACCORD-037863

PATIENT
  Age: 8 Decade
  Sex: Male

DRUGS (5)
  1. DOCETAXEL. [Suspect]
     Active Substance: DOCETAXEL
     Indication: OESOPHAGEAL CARCINOMA
     Dosage: 1 COURSE
  2. DOXORUBICIN [Suspect]
     Active Substance: DOXORUBICIN
     Indication: OESOPHAGEAL CARCINOMA
     Dosage: THREE CYCLES
  3. CISPLATIN. [Suspect]
     Active Substance: CISPLATIN
     Indication: OESOPHAGEAL CARCINOMA
     Dosage: 1 COURSE
  4. FLUOROURACIL. [Suspect]
     Active Substance: FLUOROURACIL
     Indication: OESOPHAGEAL CARCINOMA
     Dosage: THREE CYCLES AT DOSE OF 560 MG/M2 DUE TO RECURRENCE OF OESOPHAGEAL CANCER
  5. NEDAPLATIN [Suspect]
     Active Substance: NEDAPLATIN
     Indication: OESOPHAGEAL CARCINOMA

REACTIONS (5)
  - Renal impairment [Unknown]
  - Neutropenia [Unknown]
  - Bone marrow disorder [Unknown]
  - Adverse event [Unknown]
  - Diarrhoea [Unknown]
